FAERS Safety Report 20254617 (Version 1)
Quarter: 2021Q4

REPORT INFORMATION
  Report Type: Spontaneous
  Country: CA (occurrence: CA)
  Receive Date: 20211230
  Receipt Date: 20211230
  Transmission Date: 20220303
  Serious: Yes (Other)
  Sender: FDA-Public Use
  Company Number: None

PATIENT
  Age: 78 Year
  Sex: Female
  Weight: 70 kg

DRUGS (5)
  1. METHOTREXATE [Suspect]
     Active Substance: METHOTREXATE
     Indication: Product used for unknown indication
  2. ANASTROZOLE [Concomitant]
     Active Substance: ANASTROZOLE
  3. LEFLUNOMIDE [Concomitant]
     Active Substance: LEFLUNOMIDE
     Route: 048
  4. PREDNISONE [Concomitant]
     Active Substance: PREDNISONE
  5. TRASTUZUMAB [Concomitant]
     Active Substance: TRASTUZUMAB

REACTIONS (4)
  - Drug ineffective [Unknown]
  - Depression [Unknown]
  - Hepatitis B [Unknown]
  - Interstitial lung disease [Unknown]
